FAERS Safety Report 5040811-5 (Version None)
Quarter: 2006Q2

REPORT INFORMATION
  Report Type: 
  Country: None (occurrence: None)
  Receive Date: 20060601
  Receipt Date: 20060302
  Transmission Date: 20061013
  Serious: No
  Sender: FDA-Public Use
  Company Number: 2006PV009599

PATIENT
  Age: 61 Year
  Sex: Female
  Weight: 73.4827 kg

DRUGS (9)
  1. BYETTA [Suspect]
     Indication: DIABETES MELLITUS NON-INSULIN-DEPENDENT
     Dosage: 10 MCG;BID;SC; 5 MCG; BID; SC
     Route: 058
     Dates: start: 20050801, end: 20050901
  2. BYETTA [Suspect]
     Indication: DIABETES MELLITUS NON-INSULIN-DEPENDENT
     Dosage: 10 MCG;BID;SC; 5 MCG; BID; SC
     Route: 058
     Dates: start: 20050901
  3. GLUCOPHAGE [Concomitant]
  4. GLYBURIDE [Concomitant]
  5. LIPITOR [Concomitant]
  6. TRICOR [Concomitant]
  7. PROZAC [Concomitant]
  8. ALAVIDE [Concomitant]
  9. PRILOSEC [Concomitant]

REACTIONS (1)
  - ALOPECIA [None]
